FAERS Safety Report 5371356-0 (Version None)
Quarter: 2007Q2

REPORT INFORMATION
  Report Type: 
  Country: None (occurrence: None)
  Receive Date: 20070615
  Receipt Date: 20061218
  Transmission Date: 20071010
  Serious: Yes (Other)
  Sender: FDA-Public Use
  Company Number: 200617883US

PATIENT
  Age: 58 Year
  Sex: Female
  Weight: 62.27 kg

DRUGS (12)
  1. LANTUS [Suspect]
     Indication: DIABETES MELLITUS NON-INSULIN-DEPENDENT
     Dosage: 40 U HS
  2. OPTICLIK [Suspect]
  3. CYCLOBENZAPRINE HYDROCHLORIDE (FLEXERIL/00428402/) [Suspect]
  4. NOVOLOG [Concomitant]
  5. PARACETAMOL [Concomitant]
  6. DEXTROPROPOXYPHENE NAPSILATE (DARVOCET-N) [Concomitant]
  7. PIOGLITAZONE [Concomitant]
  8. VENLAFAXINE HCL [Concomitant]
  9. AMLODIPINE (NORVASC /00972401/) [Concomitant]
  10. ACCUPRIL [Concomitant]
  11. OXYBUTYNIN CHLORIDE [Concomitant]
  12. LEVOTHYROXINE SODIUM [Concomitant]

REACTIONS (8)
  - ARTHRALGIA [None]
  - BLOOD GLUCOSE DECREASED [None]
  - FALL [None]
  - GAIT DISTURBANCE [None]
  - HYPERGLYCAEMIA [None]
  - JOINT INJURY [None]
  - JOINT SWELLING [None]
  - SOMNOLENCE [None]
